FAERS Safety Report 20998223 (Version 3)
Quarter: 2022Q3

REPORT INFORMATION
  Report Type: Spontaneous
  Country: US (occurrence: US)
  Receive Date: 20220623
  Receipt Date: 20220728
  Transmission Date: 20221027
  Serious: No
  Sender: FDA-Public Use
  Company Number: US-PFIZER INC-202200813768

PATIENT
  Age: 11 Year
  Sex: Male
  Weight: 29.48 kg

DRUGS (2)
  1. GENOTROPIN [Suspect]
     Active Substance: SOMATROPIN
     Indication: Blood growth hormone
     Dosage: 0.4 ML, 1X/DAY
  2. LUPRON [Concomitant]
     Active Substance: LEUPROLIDE ACETATE
     Dosage: UNK

REACTIONS (3)
  - Drug dose omission by device [Unknown]
  - Device power source issue [Unknown]
  - Device breakage [Unknown]
